FAERS Safety Report 12351002 (Version 1)
Quarter: 2016Q2

REPORT INFORMATION
  Report Type: Spontaneous
  Country: US (occurrence: None)
  Receive Date: 20160509
  Receipt Date: 20160509
  Transmission Date: 20160815
  Serious: Yes (Other)
  Sender: FDA-Public Use
  Company Number: None

PATIENT
  Age: 30 Year
  Sex: Female
  Weight: 56.7 kg

DRUGS (1)
  1. CIPROFLOXIN BAYER [Suspect]
     Active Substance: CIPROFLOXACIN
     Indication: URINARY TRACT INFECTION
     Dosage: 20 CAPSULES TWICE A DAY
     Route: 048
     Dates: start: 20131101, end: 20131110

REACTIONS (5)
  - Neuropathy peripheral [None]
  - Anxiety [None]
  - Muscular weakness [None]
  - Visual impairment [None]
  - Migraine [None]
